FAERS Safety Report 21902709 (Version 1)
Quarter: 2023Q1

REPORT INFORMATION
  Report Type: Spontaneous
  Country: US (occurrence: None)
  Receive Date: 20230123
  Receipt Date: 20230123
  Transmission Date: 20230418
  Serious: No
  Sender: FDA-Public Use
  Company Number: None

PATIENT
  Age: 80 Year
  Sex: Male
  Weight: 83.91 kg

DRUGS (17)
  1. PROMACTA [Suspect]
     Active Substance: ELTROMBOPAG OLAMINE
     Indication: Immune thrombocytopenia
     Dosage: FREQUENCY : DAILY;?
     Route: 048
  2. ADVAIR DISKUS [Concomitant]
  3. ALBUTEROL SULFATE [Concomitant]
  4. ALLOPURINOL [Concomitant]
     Active Substance: ALLOPURINOL
  5. BUPROPION [Concomitant]
     Active Substance: BUPROPION
  6. DULOXETINE [Concomitant]
     Active Substance: DULOXETINE
  7. FINASTERIDE [Concomitant]
  8. GABAPENTIN [Concomitant]
  9. MAGNESIUM OXIDE [Concomitant]
  10. METOPROLOL TARTRATE [Concomitant]
  11. OMEPRAZOLE [Concomitant]
  12. FIBER (CALCIUM POLYCARBOPHIL) [Concomitant]
     Active Substance: CALCIUM POLYCARBOPHIL
  13. TAMSULOSIN [Concomitant]
  14. TRAMADOL [Concomitant]
  15. VITAMIN B COMPLEX [Concomitant]
  16. VITAMIN D3 [Concomitant]
  17. XARELTO [Concomitant]

REACTIONS (2)
  - Hip fracture [None]
  - Therapy interrupted [None]
